FAERS Safety Report 23151479 (Version 2)
Quarter: 2023Q4

REPORT INFORMATION
  Report Type: Report from Study
  Country: US (occurrence: US)
  Receive Date: 20231107
  Receipt Date: 20231201
  Transmission Date: 20240110
  Serious: Yes (Hospitalization, Other)
  Sender: FDA-Public Use
  Company Number: US-ABBVIE-5478524

PATIENT
  Age: 52 Year
  Sex: Female

DRUGS (1)
  1. HUMIRA [Suspect]
     Active Substance: ADALIMUMAB
     Indication: Crohn^s disease
     Route: 058
     Dates: start: 20140101

REACTIONS (4)
  - Breast cancer [Unknown]
  - Cellulitis [Unknown]
  - Obstruction gastric [Unknown]
  - COVID-19 [Unknown]

NARRATIVE: CASE EVENT DATE: 20231025
